FAERS Safety Report 8832301 (Version 1)
Quarter: 2012Q4

REPORT INFORMATION
  Report Type: Report from Study
  Country: None (occurrence: UG)
  Receive Date: 20121009
  Receipt Date: 20121009
  Transmission Date: 20130627
  Serious: Yes (Life-Threatening, Hospitalization)
  Sender: FDA-Public Use
  Company Number: UG-ABBOTT-12P-165-0992026-00

PATIENT
  Age: 25 Year
  Sex: Female

DRUGS (7)
  1. ALUVIA [Suspect]
     Indication: HIV INFECTION
     Dosage: 400mg/100mg twice daily
     Route: 048
     Dates: start: 20120530
  2. AZT [Concomitant]
     Indication: PRODUCT USED FOR UNKNOWN INDICATION
     Dates: start: 20120530, end: 20120824
  3. 3TC [Concomitant]
     Indication: PRODUCT USED FOR UNKNOWN INDICATION
     Dates: start: 20120530
  4. TENOFOVIR [Concomitant]
     Indication: PRODUCT USED FOR UNKNOWN INDICATION
     Dates: start: 20120824
  5. SEPTRIN [Concomitant]
     Indication: PROPHYLAXIS
  6. PRENATAL VITAMINS [Concomitant]
     Indication: PRODUCT USED FOR UNKNOWN INDICATION
  7. IRON SULPHATE [Concomitant]
     Indication: PRODUCT USED FOR UNKNOWN INDICATION

REACTIONS (1)
  - Anaemia [Unknown]
